FAERS Safety Report 9871021 (Version 1)
Quarter: 2014Q1

REPORT INFORMATION
  Report Type: Spontaneous
  Country: US (occurrence: None)
  Receive Date: 20140204
  Receipt Date: 20140204
  Transmission Date: 20141002
  Serious: Yes (Other)
  Sender: FDA-Public Use
  Company Number: None

PATIENT
  Age: 22 Year
  Sex: Male
  Weight: 92 kg

DRUGS (3)
  1. CHLORPROMAZINE [Suspect]
     Indication: MANIA
     Route: 048
     Dates: end: 20071011
  2. OLANZAPINE [Suspect]
     Indication: AGITATION
     Route: 048
     Dates: start: 20071010
  3. PALIPERIDONE XR [Suspect]
     Indication: MANIA

REACTIONS (1)
  - Neuroleptic malignant syndrome [None]
